FAERS Safety Report 6990303-9 (Version None)
Quarter: 2010Q3

REPORT INFORMATION
  Report Type: 
  Country: None (occurrence: None)
  Receive Date: 20100916
  Receipt Date: 20100527
  Transmission Date: 20110219
  Serious: Yes (Other)
  Sender: FDA-Public Use
  Company Number: US-PFIZER INC-2010044871

PATIENT
  Sex: Female
  Weight: 106.12 kg

DRUGS (19)
  1. LYRICA [Suspect]
     Indication: FIBROMYALGIA
     Dosage: 100 MG, 3X/DAY
     Route: 048
     Dates: start: 20100318
  2. BACLOFEN [Suspect]
     Indication: PAIN IN EXTREMITY
     Dosage: 5 MG, 2X/DAY
     Route: 048
     Dates: start: 20100318, end: 20100301
  3. BACLOFEN [Suspect]
     Indication: PARAESTHESIA
  4. LITHIUM [Suspect]
     Dosage: UNK
  5. DARVOCET [Concomitant]
     Indication: PAIN
     Dosage: 100 MG, 4X/DAY
     Route: 048
  6. ZANTAC [Concomitant]
     Indication: IRRITABLE BOWEL SYNDROME
     Dosage: 300 MG, 1X/DAY
     Route: 048
  7. ZANTAC [Concomitant]
     Indication: OESOPHAGITIS
  8. PRILOSEC [Concomitant]
     Indication: IRRITABLE BOWEL SYNDROME
     Dosage: 20 MG, 2X/DAY
     Route: 048
  9. PRILOSEC [Concomitant]
     Indication: OESOPHAGITIS
  10. BENTYL [Concomitant]
     Indication: IRRITABLE BOWEL SYNDROME
     Dosage: 20 MG, 4X/DAY
  11. LISINOPRIL [Concomitant]
     Indication: HYPERTENSION
     Dosage: 10 MG, 1X/DAY
  12. VALIUM [Concomitant]
     Indication: PANIC ATTACK
     Dosage: 5 MG, 2X/DAY
  13. VALIUM [Concomitant]
     Indication: ANXIETY
  14. ZOFRAN [Concomitant]
     Indication: NAUSEA
     Dosage: 4 MG, 2X/DAY
  15. ZOFRAN [Concomitant]
     Indication: VOMITING
  16. FISH OIL [Concomitant]
     Dosage: 1000 MG, 3X/DAY
  17. SYNTHROID [Concomitant]
     Dosage: 1 TABLET ONCE A DAY
     Route: 048
  18. ROBAXIN [Concomitant]
     Dosage: 750 MG, 2X/DAY
     Route: 048
  19. MIRALAX [Concomitant]
     Indication: CONSTIPATION
     Dosage: UNK

REACTIONS (17)
  - AMNESIA [None]
  - ANXIETY [None]
  - BACK PAIN [None]
  - CONTUSION [None]
  - DISORIENTATION [None]
  - DISTURBANCE IN ATTENTION [None]
  - DRUG HYPERSENSITIVITY [None]
  - DYSARTHRIA [None]
  - FEELING DRUNK [None]
  - INFLUENZA LIKE ILLNESS [None]
  - MUSCULOSKELETAL STIFFNESS [None]
  - NIGHTMARE [None]
  - PAIN [None]
  - PAIN IN EXTREMITY [None]
  - PANIC ATTACK [None]
  - SOFT TISSUE DISORDER [None]
  - WEIGHT INCREASED [None]
